FAERS Safety Report 14685992 (Version 1)
Quarter: 2018Q1

REPORT INFORMATION
  Report Type: Spontaneous
  Country: US (occurrence: US)
  Receive Date: 20180326
  Receipt Date: 20180326
  Transmission Date: 20180509
  Serious: Yes (Other)
  Sender: FDA-Public Use
  Company Number: None

PATIENT
  Age: 65 Year
  Sex: Female
  Weight: 65.25 kg

DRUGS (1)
  1. METFORMIN HYDROCHLORIDE EXTENDED-RELEASE TABLETS, USP [Suspect]
     Active Substance: METFORMIN HYDROCHLORIDE
     Indication: INSULIN RESISTANT DIABETES
     Dosage: ?          QUANTITY:2 TABLET(S);?
     Route: 048

REACTIONS (8)
  - Medication residue present [None]
  - Drug ineffective [None]
  - Abdominal pain [None]
  - Flatulence [None]
  - Product solubility abnormal [None]
  - Abdominal discomfort [None]
  - Blood glucose increased [None]
  - Diarrhoea [None]

NARRATIVE: CASE EVENT DATE: 20151031
